FAERS Safety Report 6595096-5 (Version None)
Quarter: 2010Q1

REPORT INFORMATION
  Report Type: 
  Country: None (occurrence: None)
  Receive Date: 20100212
  Receipt Date: 20100202
  Transmission Date: 20100710
  Serious: Yes (Other)
  Sender: FDA-Public Use
  Company Number: 2010SP004373

PATIENT
  Age: 24 Year
  Sex: Female

DRUGS (6)
  1. MIRTAZAPINE [Suspect]
     Indication: DEPRESSION
     Dosage: 15 MG; QD; PO, 30 MG; QD; PO
     Route: 048
     Dates: start: 20091021, end: 20091106
  2. MIRTAZAPINE [Suspect]
     Indication: DEPRESSION
     Dosage: 15 MG; QD; PO, 30 MG; QD; PO
     Route: 048
     Dates: start: 20091107
  3. BROTIZOLAM [Concomitant]
  4. ALPRAZOLAM [Concomitant]
  5. BROMAZEPAM [Concomitant]
  6. DIAZEPAM [Concomitant]

REACTIONS (4)
  - ABNORMAL BEHAVIOUR [None]
  - GRAND MAL CONVULSION [None]
  - MEMORY IMPAIRMENT [None]
  - STATUS EPILEPTICUS [None]
